FAERS Safety Report 5900051-1 (Version None)
Quarter: 2008Q3

REPORT INFORMATION
  Report Type: 
  Country: None (occurrence: None)
  Receive Date: 20080925
  Receipt Date: 20080925
  Transmission Date: 20090109
  Serious: Yes (Life-Threatening, Disabling, Other)
  Sender: FDA-Public Use
  Company Number: None

PATIENT
  Age: 51 Year
  Sex: Female
  Weight: 86.1834 kg

DRUGS (1)
  1. ONE-A-DAY WOMEN'S 50+ ADVANTAGE BAYER [Suspect]
     Dosage: ONE TABLET DAILY PO
     Route: 048
     Dates: start: 20080318, end: 20080322

REACTIONS (6)
  - AGITATION [None]
  - DIZZINESS [None]
  - FALL [None]
  - FEAR [None]
  - PALPITATIONS [None]
  - PHARMACEUTICAL PRODUCT COMPLAINT [None]
